FAERS Safety Report 21992862 (Version 2)
Quarter: 2023Q2

REPORT INFORMATION
  Report Type: Spontaneous
  Country: US (occurrence: None)
  Receive Date: 20230215
  Receipt Date: 20230420
  Transmission Date: 20230721
  Serious: No
  Sender: FDA-Public Use
  Company Number: 2023A029019

PATIENT
  Sex: Female

DRUGS (1)
  1. SYMBICORT [Suspect]
     Active Substance: BUDESONIDE\FORMOTEROL FUMARATE DIHYDRATE
     Indication: Chronic obstructive pulmonary disease
     Dosage: 160/4.5MCG 2 PUFFS TWICE A DAY
     Route: 055
     Dates: start: 2018

REACTIONS (4)
  - Panic disorder [Unknown]
  - Wrong technique in device usage process [Unknown]
  - Product use issue [Unknown]
  - Device malfunction [Unknown]
